FAERS Safety Report 8923186 (Version 1)
Quarter: 2012Q4

REPORT INFORMATION
  Report Type: 
  Country: US (occurrence: US)
  Receive Date: 20121123
  Receipt Date: 20121123
  Transmission Date: 20130627
  Serious: No
  Sender: FDA-Public Use
  Company Number: US-PFIZER INC-2012293786

PATIENT
  Age: 68 Year
  Sex: Female
  Weight: 49.07 kg

DRUGS (3)
  1. CHANTIX [Suspect]
     Indication: SMOKING CESSATION THERAPY
     Dosage: UNK
     Route: 048
  2. RALOXIFENE [Concomitant]
     Indication: OSTEOARTHRITIS
     Dosage: 70 mg, weekly
  3. RALOXIFENE [Concomitant]
     Indication: BONE DENSITY ABNORMAL

REACTIONS (3)
  - Inappropriate affect [Recovered/Resolved]
  - Mental disorder [Recovered/Resolved]
  - Weight decreased [Unknown]
